FAERS Safety Report 12582820 (Version 3)
Quarter: 2016Q3

REPORT INFORMATION
  Report Type: Spontaneous
  Country: DE (occurrence: DE)
  Receive Date: 20160722
  Receipt Date: 20160803
  Transmission Date: 20161109
  Serious: Yes (Other)
  Sender: FDA-Public Use
  Company Number: DE-JNJFOC-20160717484

PATIENT
  Age: 81 Year
  Sex: Male
  Weight: 183 kg

DRUGS (10)
  1. BELOZOK [Concomitant]
     Active Substance: METOPROLOL SUCCINATE
     Indication: CARDIAC FAILURE
     Dosage: 98 (UNITS UNSPECIFIED)
     Route: 065
     Dates: start: 1999
  2. XARELTO [Suspect]
     Active Substance: RIVAROXABAN
     Indication: ATRIAL FIBRILLATION
     Route: 048
     Dates: start: 20141017
  3. XARELTO [Suspect]
     Active Substance: RIVAROXABAN
     Indication: CEREBROVASCULAR ACCIDENT PROPHYLAXIS
     Route: 048
     Dates: start: 20141017
  4. TORASEMID [Concomitant]
     Active Substance: TORSEMIDE
     Indication: CARDIAC FAILURE
     Route: 065
     Dates: start: 1999
  5. RAMIPRIL. [Concomitant]
     Active Substance: RAMIPRIL
     Indication: HYPERTENSION
     Route: 065
     Dates: start: 1999
  6. DIGITOXIN [Concomitant]
     Active Substance: DIGITOXIN
     Indication: CARDIAC FAILURE
     Route: 065
     Dates: start: 1999
  7. RAMIPRIL. [Concomitant]
     Active Substance: RAMIPRIL
     Indication: CARDIAC FAILURE
     Route: 065
     Dates: start: 1999
  8. XARELTO [Suspect]
     Active Substance: RIVAROXABAN
     Indication: CEREBROVASCULAR ACCIDENT PROPHYLAXIS
     Route: 048
  9. BELOZOK [Concomitant]
     Active Substance: METOPROLOL SUCCINATE
     Indication: HYPERTENSION
     Dosage: 98 (UNITS UNSPECIFIED)
     Route: 065
     Dates: start: 1999
  10. XARELTO [Suspect]
     Active Substance: RIVAROXABAN
     Indication: ATRIAL FIBRILLATION
     Route: 048

REACTIONS (6)
  - Contraindicated product administered [Unknown]
  - Underdose [Unknown]
  - Jaundice [Recovering/Resolving]
  - Liver function test increased [Recovering/Resolving]
  - Cardiac failure [Unknown]
  - Liver function test abnormal [Unknown]

NARRATIVE: CASE EVENT DATE: 20160510
